FAERS Safety Report 23385173 (Version 1)
Quarter: 2024Q1

REPORT INFORMATION
  Report Type: Report from Study
  Country: US (occurrence: US)
  Receive Date: 20240110
  Receipt Date: 20240110
  Transmission Date: 20240410
  Serious: Yes (Death)
  Sender: FDA-Public Use
  Company Number: US-BIOGEN-2024BI01243486

PATIENT
  Sex: Female

DRUGS (1)
  1. TYSABRI [Suspect]
     Active Substance: NATALIZUMAB
     Indication: Multiple sclerosis
     Route: 050
     Dates: start: 20141016, end: 20231220

REACTIONS (4)
  - Cerebral haemorrhage [Fatal]
  - Musculoskeletal disorder [Unknown]
  - Fine motor skill dysfunction [Unknown]
  - Mobility decreased [Unknown]
